FAERS Safety Report 15717645 (Version 1)
Quarter: 2018Q4

REPORT INFORMATION
  Report Type: Spontaneous
  Country: US (occurrence: US)
  Receive Date: 20181213
  Receipt Date: 20181213
  Transmission Date: 20190205
  Serious: No
  Sender: FDA-Public Use
  Company Number: US-MYLANLABS-2018M1092669

PATIENT
  Sex: Female

DRUGS (3)
  1. SPIRONOLACTONE MYLAN [Suspect]
     Active Substance: SPIRONOLACTONE
     Indication: STIFF PERSON SYNDROME
     Dosage: UNK
  2. DIAZEPAM MYLAN [Suspect]
     Active Substance: DIAZEPAM
     Indication: PRODUCT USED FOR UNKNOWN INDICATION
     Dosage: UNK
  3. SPIRONOLACTONE MYLAN [Suspect]
     Active Substance: SPIRONOLACTONE
     Indication: EPSTEIN-BARR VIRAEMIA

REACTIONS (1)
  - Drug ineffective [Unknown]
